FAERS Safety Report 6695391-5 (Version None)
Quarter: 2010Q2

REPORT INFORMATION
  Report Type: 
  Country: None (occurrence: None)
  Receive Date: 20100423
  Receipt Date: 20100423
  Transmission Date: 20101027
  Serious: Yes (Hospitalization)
  Sender: FDA-Public Use
  Company Number: None

PATIENT
  Age: 47 Year
  Sex: Female
  Weight: 137.7 kg

DRUGS (8)
  1. METFORMIN HCL [Suspect]
     Indication: DIABETES MELLITUS
     Dosage: 500 MG TWICE DAILY PO CHRONIC
     Route: 048
  2. M.V.I. [Concomitant]
  3. LISINOPRIL [Concomitant]
  4. GLIPIZIDE [Concomitant]
  5. ACTOS [Concomitant]
  6. LOVASTATIN [Concomitant]
  7. SIMVASTATIN [Concomitant]
  8. ASPIRIN [Concomitant]

REACTIONS (10)
  - CHILLS [None]
  - DIARRHOEA [None]
  - DRUG TOXICITY [None]
  - HYPOGLYCAEMIA [None]
  - NAUSEA [None]
  - NIGHT SWEATS [None]
  - RENAL FAILURE ACUTE [None]
  - URINE OUTPUT DECREASED [None]
  - UROSEPSIS [None]
  - VOMITING [None]
